FAERS Safety Report 8854458 (Version 1)
Quarter: 2012Q4

REPORT INFORMATION
  Report Type: 
  Country: US (occurrence: US)
  Receive Date: 20121023
  Receipt Date: 20121023
  Transmission Date: 20130627
  Serious: Yes (Other)
  Sender: FDA-Public Use
  Company Number: US-FRI-1000039535

PATIENT
  Sex: Female

DRUGS (3)
  1. VIIBRYD [Suspect]
     Indication: DEPRESSION
     Dosage: 40 MG
     Dates: start: 20121010, end: 20121011
  2. RITALIN [Suspect]
     Indication: ATTENTION DEFICIT/HYPERACTIVITY DISORDER
     Dosage: 40 MG
  3. ABILIFY [Concomitant]
     Indication: DEPRESSION
     Dosage: 2 MG

REACTIONS (4)
  - Chest pain [Unknown]
  - Hypertension [Unknown]
  - Tachycardia [Unknown]
  - Drug interaction [Unknown]
